FAERS Safety Report 8844450 (Version 3)
Quarter: 2013Q1

REPORT INFORMATION
  Report Type: Spontaneous
  Country: JP (occurrence: JP)
  Receive Date: 20121017
  Receipt Date: 20130319
  Transmission Date: 20140127
  Serious: Yes (Hospitalization, Other)
  Sender: FDA-Public Use
  Company Number: PHHY2012JP079490

PATIENT
  Age: 44 Year
  Sex: Male
  Weight: 76 kg

DRUGS (5)
  1. AFINITOR [Suspect]
     Indication: RENAL CELL CARCINOMA
     Dosage: 10 MG, DAILY
     Route: 048
     Dates: start: 20111118, end: 20120405
  2. AFINITOR [Suspect]
     Dosage: 10 MG, DAILY
     Route: 048
     Dates: start: 20120621, end: 20120822
  3. THYRADIN S [Concomitant]
     Indication: THYROID FUNCTION TEST ABNORMAL
     Dosage: 150 MG, DAILY
     Route: 048
     Dates: start: 20100901
  4. CRESTOR [Concomitant]
     Indication: HYPERLIPIDAEMIA
     Dosage: 2.5 MG, UNK
     Route: 048
     Dates: start: 20100901
  5. WARFARIN [Concomitant]
     Indication: PULMONARY EMBOLISM
     Dosage: UNK
     Route: 048
     Dates: start: 20110921

REACTIONS (13)
  - Pneumothorax [Recovered/Resolved with Sequelae]
  - Dyspnoea exertional [Unknown]
  - Spinal cord compression [Unknown]
  - Respiratory failure [Unknown]
  - Organising pneumonia [Recovering/Resolving]
  - Chest pain [Recovering/Resolving]
  - Pyrexia [Recovered/Resolved]
  - Metastases to bone [Recovered/Resolved]
  - Concomitant disease aggravated [Unknown]
  - Renal cancer [Unknown]
  - Malignant neoplasm progression [Unknown]
  - White blood cell count increased [Unknown]
  - Aspartate aminotransferase increased [Unknown]
